FAERS Safety Report 19959704 (Version 1)
Quarter: 2021Q4

REPORT INFORMATION
  Report Type: Spontaneous
  Country: US (occurrence: US)
  Receive Date: 20211015
  Receipt Date: 20211015
  Transmission Date: 20220304
  Serious: Yes (Other)
  Sender: FDA-Public Use
  Company Number: None

PATIENT
  Sex: Female

DRUGS (1)
  1. METRONIDAZOLE VAGINAL [Suspect]
     Active Substance: METRONIDAZOLE

REACTIONS (1)
  - Vulvovaginal discomfort [None]
